FAERS Safety Report 15778253 (Version 1)
Quarter: 2018Q4

REPORT INFORMATION
  Report Type: Spontaneous
  Country: US (occurrence: US)
  Receive Date: 20181231
  Receipt Date: 20181231
  Transmission Date: 20190205
  Serious: Yes (Other)
  Sender: FDA-Public Use
  Company Number: US-PFIZER INC-2018018386

PATIENT
  Age: 12 Year
  Sex: Male

DRUGS (2)
  1. GENOTROPIN [Suspect]
     Active Substance: SOMATROPIN
     Indication: GROWTH HORMONE DEFICIENCY
     Dosage: 1.4 MG, DAILY
  2. GENOTROPIN [Suspect]
     Active Substance: SOMATROPIN
     Dosage: 1.8 MG, DAILY
     Dates: start: 20160215

REACTIONS (9)
  - Pharyngitis streptococcal [Unknown]
  - Sleep disorder [Not Recovered/Not Resolved]
  - Headache [Unknown]
  - Increased appetite [Recovering/Resolving]
  - Product dose omission [Recovered/Resolved]
  - Device issue [Recovered/Resolved]
  - Injection site bruising [Unknown]
  - Musculoskeletal pain [Unknown]
  - Weight increased [Unknown]

NARRATIVE: CASE EVENT DATE: 201712
